FAERS Safety Report 9492118 (Version 5)
Quarter: 2013Q4

REPORT INFORMATION
  Report Type: Spontaneous
  Country: DE (occurrence: DE)
  Receive Date: 20130830
  Receipt Date: 20131024
  Transmission Date: 20140711
  Serious: Yes (Other)
  Sender: FDA-Public Use
  Company Number: DE-JNJFOC-20130816541

PATIENT
  Age: 10 Year
  Sex: Male
  Weight: 26 kg

DRUGS (6)
  1. TOPAMAX [Suspect]
     Indication: PARTIAL SEIZURES
     Route: 048
     Dates: start: 200703, end: 20130808
  2. TOPAMAX [Suspect]
     Indication: PARTIAL SEIZURES
     Dosage: 100 MG IN THE MORNING AND 100 MG IN THE EVENING.
     Route: 048
     Dates: start: 20130808
  3. TOPAMAX [Suspect]
     Indication: EPILEPSY
     Dosage: 100 MG IN THE MORNING AND 100 MG IN THE EVENING.
     Route: 048
     Dates: start: 20130808
  4. TOPAMAX [Suspect]
     Indication: EPILEPSY
     Route: 048
     Dates: start: 200703, end: 20130808
  5. LAMOTRIGINE [Concomitant]
     Route: 065
  6. CIRCADIN [Concomitant]
     Indication: SLEEP DISORDER
     Route: 048

REACTIONS (5)
  - Hyperthyroidism [Recovered/Resolved]
  - Incorrect dose administered [Unknown]
  - Drug level increased [Recovered/Resolved]
  - Somnolence [Unknown]
  - Asthenia [Unknown]
